FAERS Safety Report 17669948 (Version 1)
Quarter: 2020Q2

REPORT INFORMATION
  Report Type: Spontaneous
  Country: US (occurrence: US)
  Receive Date: 20200415
  Receipt Date: 20200415
  Transmission Date: 20200713
  Serious: No
  Sender: FDA-Public Use
  Company Number: US-PFIZER INC-2020151406

PATIENT
  Age: 53 Year

DRUGS (1)
  1. ALPRAZOLAM. [Suspect]
     Active Substance: ALPRAZOLAM
     Dosage: UNK, 4 TIMES A DAY (EVERY 6 HOURS)

REACTIONS (2)
  - Nervousness [Unknown]
  - Panic reaction [Unknown]
